FAERS Safety Report 6058482-8 (Version None)
Quarter: 2009Q1

REPORT INFORMATION
  Report Type: 
  Country: None (occurrence: None)
  Receive Date: 20090130
  Receipt Date: 20090121
  Transmission Date: 20090719
  Serious: Yes (Hospitalization)
  Sender: FDA-Public Use
  Company Number: PHHY2008ZA27754

PATIENT
  Sex: Male

DRUGS (1)
  1. TOFRANIL [Suspect]
     Indication: ANXIETY

REACTIONS (1)
  - URINARY RETENTION [None]
